FAERS Safety Report 12668175 (Version 17)
Quarter: 2018Q3

REPORT INFORMATION
  Report Type: Report from Study
  Country: JP (occurrence: JP)
  Receive Date: 20160819
  Receipt Date: 20180813
  Transmission Date: 20181010
  Serious: Yes (Hospitalization, Other)
  Sender: FDA-Public Use
  Company Number: JP-AMGEN-JPNCT2016085356

PATIENT
  Age: 64 Year
  Sex: Female
  Weight: 55.9 kg

DRUGS (30)
  1. OXALIPLATIN. [Suspect]
     Active Substance: OXALIPLATIN
     Dosage: 90 MG, Q2WEEKS
     Route: 041
     Dates: start: 20160329, end: 20160329
  2. OXALIPLATIN. [Suspect]
     Active Substance: OXALIPLATIN
     Dosage: 70 MG, Q2WEEKS
     Route: 041
     Dates: start: 20160907, end: 20170516
  3. CALCIUM LEVOFOLINATE [Suspect]
     Active Substance: LEVOLEUCOVORIN CALCIUM
     Dosage: 300 MG, Q2WEEKS
     Route: 041
     Dates: start: 20160329, end: 20160329
  4. CALCIUM LEVOFOLINATE [Suspect]
     Active Substance: LEVOLEUCOVORIN CALCIUM
     Dosage: 300 MG, Q2WEEKS
     Route: 041
     Dates: start: 20160426, end: 20160720
  5. FLUOROURACIL. [Suspect]
     Active Substance: FLUOROURACIL
     Dosage: 2400 MG, Q2WEEKS
     Route: 041
     Dates: start: 20160426, end: 20160720
  6. FLUOROURACIL. [Suspect]
     Active Substance: FLUOROURACIL
     Dosage: 300 MG, Q2WEEKS
     Route: 040
     Dates: start: 20160525, end: 20160608
  7. PANITUMUMAB [Suspect]
     Active Substance: PANITUMUMAB
     Dosage: 320 MG, Q2WK
     Route: 041
     Dates: start: 20170308, end: 20170308
  8. PARACETAMOL [Concomitant]
     Active Substance: ACETAMINOPHEN
     Dosage: 400 MG, QID
     Route: 048
     Dates: start: 20160224
  9. CALCIUM LEVOFOLINATE [Suspect]
     Active Substance: LEVOLEUCOVORIN CALCIUM
     Indication: COLON CANCER
     Dosage: 300 MG, Q2WEEKS
     Route: 041
     Dates: start: 20160224, end: 20160224
  10. FLUOROURACIL. [Suspect]
     Active Substance: FLUOROURACIL
     Dosage: 3000 MG/M2, Q2WK
     Route: 041
     Dates: start: 20160329, end: 20160329
  11. DEXAMETHASONE SODIUM PHOSPHATE. [Suspect]
     Active Substance: DEXAMETHASONE SODIUM PHOSPHATE
     Indication: PROPHYLAXIS OF NAUSEA AND VOMITING
     Dosage: 8.25 MG, Q2WEEKS
     Route: 041
     Dates: start: 20160224
  12. PANITUMUMAB [Suspect]
     Active Substance: PANITUMUMAB
     Dosage: 320 MG, Q2WK
     Route: 041
     Dates: start: 20160426, end: 20160720
  13. PANITUMUMAB [Suspect]
     Active Substance: PANITUMUMAB
     Dosage: 320 MG, Q2WK
     Route: 041
     Dates: start: 20170405, end: 20170704
  14. CALCIUM LEVOFOLINATE [Suspect]
     Active Substance: LEVOLEUCOVORIN CALCIUM
     Dosage: 300 MG, Q2WEEKS
     Route: 041
     Dates: start: 20160907, end: 20171114
  15. FLUOROURACIL. [Suspect]
     Active Substance: FLUOROURACIL
     Dosage: 2400 MG, Q2WEEKS
     Route: 041
     Dates: start: 20160907, end: 20171114
  16. DEXAMETHASONE. [Suspect]
     Active Substance: DEXAMETHASONE
     Dosage: 2 MG, Q2WEEKS
     Route: 048
     Dates: start: 20160907
  17. PANITUMUMAB [Suspect]
     Active Substance: PANITUMUMAB
     Indication: COLON CANCER
     Dosage: 320 MG, Q2WK
     Route: 041
     Dates: start: 20160224, end: 20160224
  18. PANITUMUMAB [Suspect]
     Active Substance: PANITUMUMAB
     Dosage: 320 MG, Q2WK
     Route: 041
     Dates: start: 20160329, end: 20160329
  19. OXALIPLATIN. [Suspect]
     Active Substance: OXALIPLATIN
     Indication: COLON CANCER
     Dosage: 120 MG, Q2WEEKS
     Route: 041
     Dates: start: 20160224, end: 20160224
  20. PANITUMUMAB [Suspect]
     Active Substance: PANITUMUMAB
     Dosage: 320 MG, Q2WK
     Route: 041
     Dates: start: 20160907, end: 20160907
  21. PANITUMUMAB [Suspect]
     Active Substance: PANITUMUMAB
     Dosage: 320 MG, Q2WK
     Route: 041
     Dates: start: 20161019, end: 20161122
  22. OXALIPLATIN. [Suspect]
     Active Substance: OXALIPLATIN
     Dosage: 70 MG, Q2WEEKS
     Route: 041
     Dates: start: 20160426, end: 20160720
  23. CALCIUM LEVOFOLINATE [Suspect]
     Active Substance: LEVOLEUCOVORIN CALCIUM
     Dosage: 300 MG, Q2WEEKS
     Route: 041
     Dates: start: 20171130
  24. FLUOROURACIL. [Suspect]
     Active Substance: FLUOROURACIL
     Indication: COLON CANCER
     Dosage: 600 MG, Q2WK
     Route: 040
     Dates: start: 20160224, end: 20160224
  25. FLUOROURACIL. [Suspect]
     Active Substance: FLUOROURACIL
     Dosage: 3600 MG, Q2WK
     Route: 041
     Dates: start: 20160224, end: 20160224
  26. FLUOROURACIL. [Suspect]
     Active Substance: FLUOROURACIL
     Dosage: 300 MG, Q2WK
     Route: 040
     Dates: start: 20160329, end: 20160329
  27. FLUOROURACIL. [Suspect]
     Active Substance: FLUOROURACIL
     Dosage: 2400 MG, Q2WEEKS
     Route: 041
     Dates: start: 20171130
  28. DEXAMETHASONE SODIUM PHOSPHATE. [Suspect]
     Active Substance: DEXAMETHASONE SODIUM PHOSPHATE
     Dosage: 4.95 MG, Q2WEEKS
     Route: 041
     Dates: start: 20160907
  29. FLUOROURACIL. [Suspect]
     Active Substance: FLUOROURACIL
     Dosage: 300 MG, Q2WK
     Route: 040
     Dates: start: 20161019, end: 20170801
  30. DEXAMETHASONE. [Suspect]
     Active Substance: DEXAMETHASONE
     Indication: PROPHYLAXIS OF NAUSEA AND VOMITING
     Dosage: 4 MG, Q2WEEKS
     Route: 048
     Dates: start: 20160329

REACTIONS (25)
  - Osteoporosis [Recovering/Resolving]
  - Malaise [Recovered/Resolved]
  - Stomatitis [Recovered/Resolved]
  - Erythema [Recovered/Resolved]
  - Pruritus [Recovered/Resolved]
  - Oral herpes [Recovered/Resolved]
  - Decreased appetite [Recovered/Resolved]
  - Dry skin [Unknown]
  - Alanine aminotransferase increased [Recovered/Resolved]
  - Blood alkaline phosphatase increased [Recovered/Resolved]
  - Palmar-plantar erythrodysaesthesia syndrome [Recovered/Resolved]
  - Neutrophil count decreased [Recovered/Resolved]
  - Paronychia [Unknown]
  - Aspartate aminotransferase increased [Recovered/Resolved]
  - Dysgeusia [Recovered/Resolved]
  - Peripheral sensory neuropathy [Unknown]
  - Dysphonia [Unknown]
  - Groin pain [Recovered/Resolved]
  - Pigmentation disorder [Unknown]
  - Constipation [Unknown]
  - Palmar-plantar erythrodysaesthesia syndrome [Unknown]
  - Insomnia [Unknown]
  - Eye discharge [Recovered/Resolved]
  - Insomnia [Recovered/Resolved]
  - Hypomagnesaemia [Recovered/Resolved]

NARRATIVE: CASE EVENT DATE: 20160808
